FAERS Safety Report 24774500 (Version 1)
Quarter: 2024Q4

REPORT INFORMATION
  Report Type: Spontaneous
  Country: US (occurrence: US)
  Receive Date: 20241225
  Receipt Date: 20241225
  Transmission Date: 20250115
  Serious: No
  Sender: ACCORD
  Company Number: US-Accord-417349

PATIENT
  Sex: Female
  Weight: 50.8 kg

DRUGS (3)
  1. BUPROPION HYDROCHLORIDE [Suspect]
     Active Substance: BUPROPION HYDROCHLORIDE
     Indication: Depression
     Dosage: EXTENDED RELEASE TABLET, DAILY, ?2ND BOTTLE STARTED ABOUT 3 WEEKS AGO
     Route: 048
  2. FISH OIL [Concomitant]
     Active Substance: FISH OIL
  3. PROBIOTICS NOS [Concomitant]
     Active Substance: PROBIOTICS NOS

REACTIONS (5)
  - Drug ineffective [Unknown]
  - Depressed mood [Not Recovered/Not Resolved]
  - Product substitution issue [Unknown]
  - Somnolence [Not Recovered/Not Resolved]
  - Product contamination physical [Unknown]
